FAERS Safety Report 18904499 (Version 1)
Quarter: 2021Q1

REPORT INFORMATION
  Report Type: Spontaneous
  Country: US (occurrence: US)
  Receive Date: 20210217
  Receipt Date: 20210217
  Transmission Date: 20210420
  Serious: Yes (Death)
  Sender: FDA-Public Use
  Company Number: None

PATIENT
  Age: 91 Year
  Sex: Female
  Weight: 64 kg

DRUGS (1)
  1. KCENTRA [Suspect]
     Active Substance: COAGULATION FACTOR IX HUMAN\COAGULATION FACTOR VII HUMAN\COAGULATION FACTOR X HUMAN\PROTEIN C\PROTEIN S HUMAN\PROTHROMBIN
     Dates: start: 20201023, end: 20201023

REACTIONS (6)
  - Craniotomy [None]
  - Mental status changes [None]
  - Meningitis [None]
  - Cerebral infarction [None]
  - Anxiety [None]
  - Cardiac arrest [None]

NARRATIVE: CASE EVENT DATE: 20201103
